FAERS Safety Report 20527688 (Version 1)
Quarter: 2022Q1

REPORT INFORMATION
  Report Type: Spontaneous
  Country: US (occurrence: None)
  Receive Date: 20220228
  Receipt Date: 20220228
  Transmission Date: 20220424
  Serious: No
  Sender: FDA-Public Use
  Company Number: None

PATIENT
  Age: 5 Year
  Sex: Female

DRUGS (1)
  1. HUMIRA [Suspect]
     Active Substance: ADALIMUMAB
     Indication: Juvenile idiopathic arthritis
     Dosage: OTHER FREQUENCY : EVERY 14 DAYS;?
     Route: 058
     Dates: start: 202106

REACTIONS (4)
  - Juvenile idiopathic arthritis [None]
  - Gait disturbance [None]
  - Musculoskeletal stiffness [None]
  - Joint effusion [None]

NARRATIVE: CASE EVENT DATE: 20220201
